FAERS Safety Report 7391229-1 (Version None)
Quarter: 2011Q1

REPORT INFORMATION
  Report Type: 
  Country: None (occurrence: None)
  Receive Date: 20110324
  Receipt Date: 20110310
  Transmission Date: 20110831
  Serious: Yes (Hospitalization)
  Sender: FDA-Public Use
  Company Number: 1000016485

PATIENT
  Age: 72 Year
  Sex: Male
  Weight: 60 kg

DRUGS (2)
  1. MEMANTINE [Suspect]
     Indication: DEMENTIA ALZHEIMER'S TYPE
     Dosage: 5 MG (5 MG, 1 IN 1 D), ORAL
     Route: 048
     Dates: start: 20100910, end: 20100912
  2. MIRTAZAPINE [Concomitant]

REACTIONS (1)
  - PARTIAL SEIZURES [None]
